FAERS Safety Report 14616037 (Version 1)
Quarter: 2018Q1

REPORT INFORMATION
  Report Type: Spontaneous
  Country: CH (occurrence: CH)
  Receive Date: 20180309
  Receipt Date: 20180309
  Transmission Date: 20180509
  Serious: Yes (Other)
  Sender: FDA-Public Use
  Company Number: CH-BAXTER-2018BAX007050

PATIENT
  Age: 44 Year
  Sex: Female
  Weight: 56 kg

DRUGS (41)
  1. HOLOXAN 2 G [Suspect]
     Active Substance: IFOSFAMIDE
     Indication: PALLIATIVE CARE
     Dosage: FIRST CYCLE, OVER 24 HOURS, ON DAY 1-5
     Route: 042
     Dates: start: 20171212, end: 20171216
  2. HOLOXAN 2 G [Suspect]
     Active Substance: IFOSFAMIDE
     Indication: METASTASES TO LUNG
  3. UROMITEXAN 400 MG, FILMTABLETTEN [Suspect]
     Active Substance: MESNA
     Dosage: ON DAY 6, DOSAGE FORM: UNSPECIFIED, DURING THIRD CYCLE
     Route: 048
     Dates: start: 20180206, end: 20180206
  4. DOXORUBICIN [Suspect]
     Active Substance: DOXORUBICIN
     Indication: METASTASES TO BONE
  5. PREGABALIN PFIZER [Concomitant]
     Active Substance: PREGABALIN
     Indication: PRODUCT USED FOR UNKNOWN INDICATION
     Dosage: 2-0-2,
     Route: 065
  6. KCL HAUSMANN RETARD [Concomitant]
     Indication: PRODUCT USED FOR UNKNOWN INDICATION
     Dosage: 10 MMOL COATED TABLETS, 2-2-2
     Route: 065
  7. VITAMIN D3 STREULI TROPFEN [Concomitant]
     Indication: PRODUCT USED FOR UNKNOWN INDICATION
     Dosage: 4000 IE/ML 1600 IE -0-0, LIQUIDS, DROPS
     Route: 065
  8. CALCIUM D3 SANDOZ [Concomitant]
     Active Substance: CALCIUM\CHOLECALCIFEROL
     Indication: PRODUCT USED FOR UNKNOWN INDICATION
     Dosage: DOSAGE FORM: UNSPECIFIED, 500MG/1000IE 0-1-0
     Route: 065
  9. UROMITEXAN 400 MG, FILMTABLETTEN [Suspect]
     Active Substance: MESNA
     Indication: PALLIATIVE CARE
     Dosage: ON DAY 6, DOSAGE FORM: UNSPECIFIED, DURING FIRST CYCLE
     Route: 048
     Dates: start: 20171217, end: 20171217
  10. DOXORUBICIN [Suspect]
     Active Substance: DOXORUBICIN
     Indication: PALLIATIVE CARE
     Dosage: SECOND CYCLE, DAY 1-3, DOSAGE FORM: UNSPECIFIED
     Route: 041
     Dates: start: 20180104, end: 20180106
  11. DOXORUBICIN [Suspect]
     Active Substance: DOXORUBICIN
     Indication: METASTASES TO LIVER
  12. PANTOZOL [Concomitant]
     Active Substance: PANTOPRAZOLE SODIUM
     Indication: PRODUCT USED FOR UNKNOWN INDICATION
     Dosage: COATED TABLETS, ENTERIC, 1-0-0
     Route: 065
  13. ZOLPIDEM [Concomitant]
     Active Substance: ZOLPIDEM\ZOLPIDEM TARTRATE
     Indication: PRODUCT USED FOR UNKNOWN INDICATION
     Dosage: 0-0-0-1
     Route: 065
  14. AMPHO MORONAL [Concomitant]
     Active Substance: AMPHOTERICIN B
     Indication: PRODUCT USED FOR UNKNOWN INDICATION
     Dosage: DOSAGE FORM: UNSPECIFIED, 1-1-1 -1
     Route: 002
  15. HOLOXAN 2 G [Suspect]
     Active Substance: IFOSFAMIDE
     Indication: METASTASES TO LIVER
     Dosage: THIRD CYCLE, OVER 24 HOURS, ON DAY 1-5
     Route: 042
     Dates: start: 20180201, end: 20180205
  16. UROMITEXAN 400 ML, L?SUNG ZUR INTRAVEN?SEN ANWENDUNG [Suspect]
     Active Substance: MESNA
     Indication: PALLIATIVE CARE
     Dosage: OVER 24 H ON DAY 1-5,DOSAGE FORM: UNSPECIFIED, DURING FIRST CYCLE
     Route: 042
     Dates: start: 20171212, end: 20171216
  17. EMEND [Suspect]
     Active Substance: APREPITANT
     Dosage: ACCORDING TO THE SAME SCHEDULE IN EACH CYCLE, DOSAGE FORM: UNSPECIFIED. FIRST CYCLE, ON DAY 2 TO 3
     Route: 065
     Dates: start: 20171213, end: 20171214
  18. CHAMOMILLA [Concomitant]
     Indication: PRODUCT USED FOR UNKNOWN INDICATION
     Dosage: DOSAGE FORM: UNSPECIFIED, STELLER D 6 3X PER DAY
     Route: 048
  19. DOXORUBICIN [Suspect]
     Active Substance: DOXORUBICIN
     Indication: METASTASES TO LUNG
     Dosage: FIRST CYCLE, DAY 1-3, DOSAGE FORM: UNSPECIFIED
     Route: 041
     Dates: start: 20171212, end: 20171214
  20. DOXORUBICIN [Suspect]
     Active Substance: DOXORUBICIN
     Indication: PERIPHERAL NERVE SHEATH TUMOUR MALIGNANT
     Dosage: THIRD CYCLE, DAY 1-3, DOSAGE FORM: UNSPECIFIED
     Route: 041
     Dates: start: 20180201, end: 20180203
  21. DOXORUBICIN [Suspect]
     Active Substance: DOXORUBICIN
     Indication: METASTASES TO LYMPH NODES
  22. FORTECORTIN [Concomitant]
     Active Substance: DEXAMETHASONE
     Indication: PRODUCT USED FOR UNKNOWN INDICATION
     Dosage: TABLETS, 4 MG, 2-0-0-0-0
     Route: 065
  23. KEPPRA [Concomitant]
     Active Substance: LEVETIRACETAM
     Indication: PRODUCT USED FOR UNKNOWN INDICATION
     Dosage: LIQUIDS, DOSAGE PIPETTE 1 ML, 15 ML-0-15 ML
     Route: 065
  24. MST CONTINUS [Concomitant]
     Active Substance: MORPHINE SULFATE
     Indication: PRODUCT USED FOR UNKNOWN INDICATION
     Dosage: TABLETS, OTHER, 1-0-0-1
     Route: 065
  25. SIRDALUD [Concomitant]
     Active Substance: TIZANIDINE
     Indication: PRODUCT USED FOR UNKNOWN INDICATION
     Dosage: TABLETS, 4 MG, 0.5-0-0.5
     Route: 065
  26. EMEND [Suspect]
     Active Substance: APREPITANT
     Dosage: ACCORDING TO THE SAME SCHEDULE IN EACH CYCLE, DOSAGE FORM: UNSPECIFIED. SECOND CYCLE, ON DAY 2 TO 3
     Route: 065
     Dates: start: 20180105, end: 20180106
  27. EMEND [Suspect]
     Active Substance: APREPITANT
     Dosage: ACCORDING TO THE SAME SCHEDULE IN EACH CYCLE, DOSAGE FORM: UNSPECIFIED. THIRD CYCLE, ON DAY 2 TO 3
     Route: 065
     Dates: start: 20180202, end: 20180203
  28. KYTRIL [Suspect]
     Active Substance: GRANISETRON HYDROCHLORIDE
     Indication: PRODUCT USED FOR UNKNOWN INDICATION
     Dosage: 1-0-0-0-0
     Route: 048
     Dates: start: 20180201, end: 20180205
  29. HOLOXAN 2 G [Suspect]
     Active Substance: IFOSFAMIDE
     Indication: METASTASES TO LYMPH NODES
     Dosage: DOSE REINTRODUCED
     Route: 042
  30. HOLOXAN 2 G [Suspect]
     Active Substance: IFOSFAMIDE
     Indication: METASTASES TO BONE
  31. UROMITEXAN 400 ML, L?SUNG ZUR INTRAVEN?SEN ANWENDUNG [Suspect]
     Active Substance: MESNA
     Dosage: OVER 24 H ON DAY 1-5,DOSAGE FORM: UNSPECIFIED, DURING THIRD CYCLE
     Route: 042
     Dates: start: 20180201, end: 20180205
  32. FRAGMIN [Concomitant]
     Active Substance: DALTEPARIN SODIUM
     Indication: PRODUCT USED FOR UNKNOWN INDICATION
     Dosage: VIALS, 0.2ML, PRE-FILLED SYRINGE 0-0-0-1
     Route: 065
  33. EMEND [Suspect]
     Active Substance: APREPITANT
     Dosage: ACCORDING TO THE SAME SCHEDULE IN EACH CYCLE, DOSAGE FORM: UNSPECIFIED. SECOND CYCLE ON DAY 1
     Route: 065
     Dates: start: 20180104, end: 20180104
  34. EMEND [Suspect]
     Active Substance: APREPITANT
     Dosage: ACCORDING TO THE SAME SCHEDULE IN EACH CYCLE, DOSAGE FORM: UNSPECIFIED. THIRD CYCLE ON DAY 1
     Route: 065
     Dates: start: 20180201, end: 20180201
  35. ACIDUM FOLICUM STREULI [Concomitant]
     Active Substance: FOLIC ACID
     Indication: PRODUCT USED FOR UNKNOWN INDICATION
     Dosage: 0-0-0-1
     Route: 065
  36. PYRALVEX LOESUNG [Concomitant]
     Indication: PRODUCT USED FOR UNKNOWN INDICATION
     Dosage: LIQUIDS, SOLUTION,
     Route: 002
  37. HOLOXAN 2 G [Suspect]
     Active Substance: IFOSFAMIDE
     Indication: PERIPHERAL NERVE SHEATH TUMOUR MALIGNANT
     Dosage: SECOND CYCLE, OVER 24 HOURS, ON DAY 1-5
     Route: 042
     Dates: start: 20180104, end: 20180108
  38. UROMITEXAN 400 ML, L?SUNG ZUR INTRAVEN?SEN ANWENDUNG [Suspect]
     Active Substance: MESNA
     Dosage: OVER 24 H ON DAY 1-5,DOSAGE FORM: UNSPECIFIED, DURING SECOND CYCLE
     Route: 042
     Dates: start: 20180104, end: 20180108
  39. UROMITEXAN 400 MG, FILMTABLETTEN [Suspect]
     Active Substance: MESNA
     Dosage: ON DAY 6, DOSAGE FORM: UNSPECIFIED, DURING SECOND CYCLE
     Route: 048
     Dates: start: 20180109, end: 20180109
  40. EMEND [Suspect]
     Active Substance: APREPITANT
     Indication: PROPHYLAXIS OF NAUSEA AND VOMITING
     Dosage: ACCORDING TO THE SAME SCHEDULE IN EACH CYCLE, . DOSAGE FORM: UNSPECIFIED. FIRST CYCLE, ON DAY 1
     Route: 065
     Dates: start: 20171212, end: 20171212
  41. TRITTICO [Concomitant]
     Active Substance: TRAZODONE HYDROCHLORIDE
     Indication: PRODUCT USED FOR UNKNOWN INDICATION
     Dosage: DOSAGE FORM: UNSPECIFIED, 0-0-0-1.5, TABLET 50 MG
     Route: 065

REACTIONS (3)
  - Off label use [None]
  - Toxic encephalopathy [Recovered/Resolved]
  - Drug interaction [Recovered/Resolved]

NARRATIVE: CASE EVENT DATE: 20180201
